FAERS Safety Report 9632460 (Version 2)
Quarter: 2013Q4

REPORT INFORMATION
  Report Type: Report from Study
  Country: US (occurrence: US)
  Receive Date: 20131018
  Receipt Date: 20131220
  Transmission Date: 20140711
  Serious: Yes (Other)
  Sender: FDA-Public Use
  Company Number: US-US-EMD SERONO, INC.-7243718

PATIENT
  Sex: Female

DRUGS (3)
  1. REBIF [Suspect]
     Indication: MULTIPLE SCLEROSIS
     Route: 058
     Dates: start: 200312, end: 201209
  2. REBIF [Suspect]
     Route: 058
     Dates: start: 20131004
  3. ALEVE                              /00256202/ [Concomitant]
     Indication: PREMEDICATION

REACTIONS (5)
  - Injection site necrosis [Recovered/Resolved]
  - Memory impairment [Not Recovered/Not Resolved]
  - Muscle spasms [Not Recovered/Not Resolved]
  - Fatigue [Not Recovered/Not Resolved]
  - Injection site reaction [Unknown]
